FAERS Safety Report 6102206-2 (Version None)
Quarter: 2009Q1

REPORT INFORMATION
  Report Type: 
  Country: None (occurrence: None)
  Receive Date: 20090304
  Receipt Date: 20090220
  Transmission Date: 20090719
  Serious: Yes (Death, Life-Threatening, Hospitalization)
  Sender: FDA-Public Use
  Company Number: SE-AMGEN-UK330868

PATIENT
  Sex: Male

DRUGS (4)
  1. PANITUMUMAB [Suspect]
     Indication: COLORECTAL CANCER
     Route: 042
     Dates: start: 20080418, end: 20080925
  2. LEUCOVORIN CALCIUM [Concomitant]
     Route: 042
     Dates: start: 20080418, end: 20080925
  3. IRINOTECAN HCL [Concomitant]
     Route: 042
     Dates: start: 20080418, end: 20080925
  4. FLUOROURACIL [Concomitant]
     Route: 040
     Dates: start: 20080418, end: 20080925

REACTIONS (2)
  - HEPATIC FAILURE [None]
  - SEPSIS [None]
